APPROVED DRUG PRODUCT: TERAZOL 7
Active Ingredient: TERCONAZOLE
Strength: 0.4% **Federal Register determination that product was not discontinued or withdrawn for safety or effectiveness reasons**
Dosage Form/Route: CREAM;VAGINAL
Application: N019579 | Product #001
Applicant: JANSSEN PHARMACEUTICALS INC
Approved: Dec 31, 1987 | RLD: Yes | RS: No | Type: DISCN